FAERS Safety Report 5492685-6 (Version None)
Quarter: 2007Q4

REPORT INFORMATION
  Report Type: 
  Country: None (occurrence: None)
  Receive Date: 20071017
  Receipt Date: 20071002
  Transmission Date: 20080405
  Serious: Yes (Death)
  Sender: FDA-Public Use
  Company Number: B0490871A

PATIENT
  Age: 60 Year
  Sex: Male

DRUGS (8)
  1. MELPHALAN (FORMULATION UNKNOWN) (GENERIC) (MELPHALAN) [Suspect]
     Indication: MULTIPLE MYELOMA
  2. FLUDARABINE PHOSPHATE [Suspect]
     Indication: STEM CELL TRANSPLANT
  3. BUSULPHAN (FORMULATION UNKNOWN) (GENERIC) (BUSULPHAN) [Suspect]
     Indication: STEM CELL TRANSPLANT
  4. TACROLIMUS (FORMULATION UNKNOWN) (TACROLIMUS) [Suspect]
     Indication: PROPHYLAXIS AGAINST TRANSPLANT REJECTION
     Dosage: INTRAVENOUS
     Route: 042
  5. CIPROFLOXACIN [Suspect]
     Indication: ANTIBIOTIC PROPHYLAXIS
  6. ACYCLOVIR [Suspect]
     Indication: ANTIVIRAL PROPHYLAXIS
  7. ITRACONAZOLE [Concomitant]
     Indication: ANTIFUNGAL PROPHYLAXIS
  8. CANCER CHEMOTHERAPY [Concomitant]

REACTIONS (12)
  - CORD BLOOD TRANSPLANT THERAPY [None]
  - GENERAL PHYSICAL HEALTH DETERIORATION [None]
  - HYPOVOLAEMIC SHOCK [None]
  - IMMUNE SYSTEM DISORDER [None]
  - PLATELET COUNT ABNORMAL [None]
  - PLEURAL EFFUSION [None]
  - PULMONARY ALVEOLAR HAEMORRHAGE [None]
  - PULMONARY CONGESTION [None]
  - PYREXIA [None]
  - RASH [None]
  - RESPIRATORY FAILURE [None]
  - WEIGHT INCREASED [None]
